FAERS Safety Report 11836038 (Version 1)
Quarter: 2015Q4

REPORT INFORMATION
  Report Type: Spontaneous
  Country: FR (occurrence: FR)
  Receive Date: 20151215
  Receipt Date: 20151215
  Transmission Date: 20160305
  Serious: Yes (Hospitalization)
  Sender: FDA-Public Use
  Company Number: FR-PFIZER INC-2015423122

PATIENT
  Age: 80 Year
  Sex: Female

DRUGS (13)
  1. DOLIPRANE [Concomitant]
     Active Substance: ACETAMINOPHEN
     Dosage: 2 TO 3X/DAY
  2. OXYCONTIN [Concomitant]
     Active Substance: OXYCODONE HYDROCHLORIDE
     Dosage: UNK, 1X/DAY
  3. XATRAL LP [Concomitant]
     Active Substance: ALFUZOSIN
     Dosage: UNK, 1X/DAY
  4. STILNOX [Concomitant]
     Active Substance: ZOLPIDEM TARTRATE
     Dosage: UNK, 1X/DAY
  5. MOTILIUM [Concomitant]
     Active Substance: DOMPERIDONE
     Dosage: UNK, 2 TO 3X/DAY
  6. HEMIGOXINE [Concomitant]
     Active Substance: DIGOXIN
     Dosage: 3 TIMES PER WEEK
  7. CITALOPRAM [Concomitant]
     Active Substance: CITALOPRAM HYDROBROMIDE
     Dosage: 0.5 DOSAGE FORM,  DAILY
  8. NEURONTIN [Suspect]
     Active Substance: GABAPENTIN
     Indication: NEURALGIA
     Dosage: 300 MG, 3X/DAY
     Route: 048
     Dates: start: 20151008, end: 20151017
  9. INEXIUM /01479302/ [Concomitant]
     Active Substance: ESOMEPRAZOLE MAGNESIUM
     Dosage: UNK, 1X/DAY
  10. ALOPLASTINE ACID [Suspect]
     Active Substance: GLYCERIN\TALC\ZINC OXIDE
     Indication: FUNGAL INFECTION
     Dosage: UNK
     Route: 061
     Dates: start: 20151008, end: 20151017
  11. SERESTA [Concomitant]
     Active Substance: OXAZEPAM
     Dosage: UNK, 1X/DAY
  12. DIPROSONE /00008502/ [Suspect]
     Active Substance: BETAMETHASONE SODIUM PHOSPHATE
     Indication: FUNGAL INFECTION
     Dosage: UNK
     Route: 061
     Dates: start: 20151008, end: 20151017
  13. LAMISIL [Suspect]
     Active Substance: TERBINAFINE HYDROCHLORIDE
     Indication: FUNGAL INFECTION
     Dosage: UNK
     Route: 061
     Dates: start: 20151008, end: 20151017

REACTIONS (4)
  - Eosinophilia [Unknown]
  - Toxic skin eruption [Unknown]
  - Somnolence [Unknown]
  - Oedema peripheral [None]

NARRATIVE: CASE EVENT DATE: 20151012
